FAERS Safety Report 17618439 (Version 2)
Quarter: 2020Q4

REPORT INFORMATION
  Report Type: Spontaneous
  Country: FR (occurrence: FR)
  Receive Date: 20200402
  Receipt Date: 20201104
  Transmission Date: 20210113
  Serious: Yes (Death, Life-Threatening)
  Sender: FDA-Public Use
  Company Number: FR-BAUSCH-BL-2020-008979

PATIENT
  Age: 81 Year
  Sex: Male
  Weight: 74 kg

DRUGS (3)
  1. OFLOXACINE [Suspect]
     Active Substance: OFLOXACIN
     Indication: STAPHYLOCOCCAL BACTERAEMIA
     Dosage: SPECIALTY, DOSAGE AND ROUTE OF ADMINISTRATION NOT KNOWN
     Route: 065
     Dates: start: 20200205, end: 20200216
  2. AUGMENTIN [Suspect]
     Active Substance: AMOXICILLIN\CLAVULANATE POTASSIUM
     Indication: STAPHYLOCOCCAL BACTERAEMIA
     Dosage: DOSAGE AND ROUTE OF ADMINISTRATION NOT KNOWN
     Route: 065
     Dates: start: 20200204, end: 20200205
  3. CEFTRIAXONE SODIQUE [Suspect]
     Active Substance: CEFTRIAXONE SODIUM
     Indication: STAPHYLOCOCCAL BACTERAEMIA
     Dosage: SPECIALTY, DOSAGE AND ROUTE OF ADMINISTRATION NOT KNOWN
     Route: 065
     Dates: start: 20200205, end: 20200216

REACTIONS (2)
  - Acute kidney injury [Recovered/Resolved]
  - Henoch-Schonlein purpura [Recovered/Resolved with Sequelae]

NARRATIVE: CASE EVENT DATE: 20200219
